FAERS Safety Report 8203985-0 (Version None)
Quarter: 2012Q1

REPORT INFORMATION
  Report Type: 
  Country: None (occurrence: None)
  Receive Date: 20120313
  Receipt Date: 20120309
  Transmission Date: 20120608
  Serious: No
  Sender: FDA-Public Use
  Company Number: US-PFIZER INC-2012063636

PATIENT
  Sex: Female

DRUGS (2)
  1. LYRICA [Suspect]
     Indication: MULTIPLE SCLEROSIS
     Dosage: 300 MG, 2X/DAY
     Dates: start: 20100101, end: 20120201
  2. LYRICA [Suspect]
     Indication: PAIN

REACTIONS (1)
  - PAIN [None]
